FAERS Safety Report 6601380-9 (Version None)
Quarter: 2010Q1

REPORT INFORMATION
  Report Type: 
  Country: None (occurrence: None)
  Receive Date: 20100224
  Receipt Date: 20100224
  Transmission Date: 20100710
  Serious: No
  Sender: FDA-Public Use
  Company Number: None

PATIENT
  Age: 62 Year
  Sex: Female
  Weight: 75 kg

DRUGS (2)
  1. TAXOTERE [Suspect]
     Indication: BREAST CANCER
     Dosage: 135 MG IN 250 ML NS
     Dates: start: 20091229
  2. TAXOTERE [Suspect]

REACTIONS (7)
  - DRY SKIN [None]
  - ERYTHEMA [None]
  - MIDDLE INSOMNIA [None]
  - POOR QUALITY SLEEP [None]
  - RASH PRURITIC [None]
  - SKIN FISSURES [None]
  - XEROSIS [None]
